FAERS Safety Report 10171097 (Version 1)
Quarter: 2014Q2

REPORT INFORMATION
  Report Type: Spontaneous
  Country: US (occurrence: None)
  Receive Date: 20140501
  Receipt Date: 20140501
  Transmission Date: 20141212
  Serious: No
  Sender: FDA-Public Use
  Company Number: PHEH2014US000960

PATIENT
  Age: 71 Year
  Sex: Female

DRUGS (4)
  1. ARCAPTA [Suspect]
     Indication: CHRONIC OBSTRUCTIVE PULMONARY DISEASE
  2. LOSARTAN (LOSARTAN) [Concomitant]
  3. HYDROCHLOROTHIAZIDE (HYDROCHLOROTHIAZIDE) [Concomitant]
  4. ANTIBIOTICS (NO INGREDIENT/SUBSTANCES) [Concomitant]

REACTIONS (2)
  - Incorrect route of drug administration [None]
  - Bronchitis [None]
